FAERS Safety Report 8805270 (Version 1)
Quarter: 2012Q4

REPORT INFORMATION
  Report Type: 
  Country: DE (occurrence: DE)
  Receive Date: 20120924
  Receipt Date: 20120924
  Transmission Date: 20130627
  Serious: Yes (Death, Other)
  Sender: FDA-Public Use
  Company Number: PHHY2012DE081589

PATIENT
  Age: 40 Year
  Sex: Female

DRUGS (11)
  1. CYCLOPHOSPHAMIDE [Suspect]
     Indication: BURKITT^S LYMPHOMA STAGE II
     Dosage: Total 6 cycles
  2. DOXORUBICIN [Suspect]
     Indication: BURKITT^S LYMPHOMA STAGE II
     Dosage: Total-6 cycles
  3. VINCRISTINE [Suspect]
     Indication: BURKITT^S LYMPHOMA STAGE II
     Dosage: Total-6 cycles
  4. PREDNISOLONE [Suspect]
     Indication: BURKITT^S LYMPHOMA STAGE II
     Dosage: Total-6 cycles
  5. ETOPOSIDE [Suspect]
     Indication: BURKITT^S LYMPHOMA STAGE II
     Dosage: Total-2 cycles
  6. CARBOPLATIN [Suspect]
     Indication: BURKITT^S LYMPHOMA STAGE II
     Dosage: Total 2 cycle
  7. CICLOSPORIN [Suspect]
     Indication: LIVER TRANSPLANT
     Dosage: 150 mg, daily
  8. RITUXIMAB [Suspect]
     Indication: BURKITT^S LYMPHOMA STAGE II
     Dosage: 375 mg/m2, ONCE/SINGLE
  9. RITUXIMAB [Suspect]
     Dosage: 375 mg/m2, ONCE/SINGLE
  10. RITUXIMAB [Suspect]
     Dosage: 375 mg/m2, ONCE/SINGLE
  11. RITUXIMAB [Suspect]
     Dosage: 375 mg/m2, ONCE/SINGLE

REACTIONS (4)
  - Sepsis [Fatal]
  - Burkitt^s lymphoma stage II [Recovered/Resolved]
  - Neuropathy peripheral [Unknown]
  - Leukopenia [Unknown]
